FAERS Safety Report 25797103 (Version 1)
Quarter: 2025Q3

REPORT INFORMATION
  Report Type: Report from Study
  Country: CA (occurrence: CA)
  Receive Date: 20250912
  Receipt Date: 20250912
  Transmission Date: 20251021
  Serious: Yes (Hospitalization, Other)
  Sender: ABBVIE
  Company Number: CA-ABBVIE-6396159

PATIENT
  Age: 65 Year
  Sex: Female

DRUGS (1)
  1. HUMIRA [Suspect]
     Active Substance: ADALIMUMAB
     Indication: Crohn^s disease
     Dosage: LAST INJECTION ON - 23 JUL 25
     Route: 058

REACTIONS (2)
  - Urinary cystectomy [Unknown]
  - Bladder cancer [Unknown]

NARRATIVE: CASE EVENT DATE: 20250501
